FAERS Safety Report 7252616-5 (Version None)
Quarter: 2011Q1

REPORT INFORMATION
  Report Type: 
  Country: None (occurrence: None)
  Receive Date: 20110129
  Receipt Date: 20100422
  Transmission Date: 20110831
  Serious: No
  Sender: FDA-Public Use
  Company Number: US-ABBOTT-10P-163-0640225-00

PATIENT
  Sex: Female

DRUGS (1)
  1. HUMIRA [Suspect]
     Indication: CROHN'S DISEASE
     Dates: start: 20100215

REACTIONS (6)
  - FALL [None]
  - MUSCULAR WEAKNESS [None]
  - TREMOR [None]
  - PRURITUS GENERALISED [None]
  - PROCTALGIA [None]
  - BACK PAIN [None]
